FAERS Safety Report 8771563 (Version 1)
Quarter: 2012Q4

REPORT INFORMATION
  Report Type: 
  Country: US (occurrence: US)
  Receive Date: 20120906
  Receipt Date: 20120906
  Transmission Date: 20130627
  Serious: Yes (Hospitalization)
  Sender: FDA-Public Use
  Company Number: US-BAYER-2012-091435

PATIENT
  Age: 22 Year
  Sex: Female
  Weight: 62.59 kg

DRUGS (6)
  1. YAZ [Suspect]
  2. BEYAZ [Suspect]
  3. AVELOX [Concomitant]
     Dosage: UNK
     Dates: start: 20110722
  4. HYDROCODONE W/ACETAMINOPHEN [Concomitant]
     Dosage: UNK
     Dates: start: 20110722
  5. ONDANSETRON [Concomitant]
     Dosage: UNK
     Dates: start: 20110722
  6. DOXYCYCLINE [Concomitant]
     Dosage: UNK
     Dates: start: 20110725

REACTIONS (1)
  - Pulmonary embolism [Recovered/Resolved]
